FAERS Safety Report 8760690 (Version 1)
Quarter: 2012Q4

REPORT INFORMATION
  Report Type: 
  Country: CN (occurrence: CN)
  Receive Date: 20120830
  Receipt Date: 20120830
  Transmission Date: 20130627
  Serious: Yes (Other)
  Sender: FDA-Public Use
  Company Number: CN-SANOFI-AVENTIS-2012SA061612

PATIENT
  Age: 46 Year
  Sex: Female
  Weight: 55 kg

DRUGS (1)
  1. OXALIPLATIN [Suspect]
     Indication: DRUG USE FOR UNKNOWN INDICATION
     Route: 042
     Dates: start: 20100804, end: 20100805

REACTIONS (8)
  - Cholinergic syndrome [Recovered/Resolved]
  - Abdominal pain [Recovered/Resolved]
  - Lacrimation increased [Recovered/Resolved]
  - Salivary hypersecretion [Recovered/Resolved]
  - Pruritus [Recovered/Resolved]
  - Hyperpyrexia [Recovered/Resolved]
  - Flushing [Recovered/Resolved]
  - Chills [Recovered/Resolved]
